FAERS Safety Report 18663428 (Version 2)
Quarter: 2021Q1

REPORT INFORMATION
  Report Type: Spontaneous
  Country: US (occurrence: US)
  Receive Date: 20201224
  Receipt Date: 20210108
  Transmission Date: 20210419
  Serious: Yes (Other)
  Sender: FDA-Public Use
  Company Number: US-TAKEDA-2020TUS058838

PATIENT
  Sex: Male
  Weight: 70 kg

DRUGS (5)
  1. REMICADE [Concomitant]
     Active Substance: INFLIXIMAB
     Indication: CROHN^S DISEASE
     Dosage: 5 MILLIGRAM
     Dates: start: 2007
  2. MARIJUANA [Concomitant]
     Active Substance: CANNABIS SATIVA SUBSP. INDICA TOP
     Dosage: UNK
  3. LYRICA [Concomitant]
     Active Substance: PREGABALIN
     Dosage: UNK
  4. OXYMORPHONE [Concomitant]
     Active Substance: OXYMORPHONE
     Dosage: UNK UNK, BID
  5. ENTYVIO [Suspect]
     Active Substance: VEDOLIZUMAB
     Indication: CROHN^S DISEASE
     Dosage: 300 MILLIGRAM
     Route: 042
     Dates: start: 2017

REACTIONS (14)
  - Pain in extremity [Unknown]
  - Fatigue [Unknown]
  - Alpha 2 globulin decreased [Unknown]
  - Dyskinesia [Not Recovered/Not Resolved]
  - Hypoaesthesia [Unknown]
  - Paraesthesia [Not Recovered/Not Resolved]
  - Lumbar radiculopathy [Unknown]
  - Neck pain [Unknown]
  - Neuropathy peripheral [Unknown]
  - Gynaecomastia [Unknown]
  - Muscular weakness [Unknown]
  - Cerebral atrophy [Unknown]
  - Myoclonus [Unknown]
  - Arthralgia [Unknown]

NARRATIVE: CASE EVENT DATE: 2019
